FAERS Safety Report 8255530-1 (Version None)
Quarter: 2012Q2

REPORT INFORMATION
  Report Type: 
  Country: None (occurrence: None)
  Receive Date: 20120403
  Receipt Date: 20120329
  Transmission Date: 20120825
  Serious: Yes (Death)
  Sender: FDA-Public Use
  Company Number: US-PFIZER INC-2012080958

PATIENT

DRUGS (3)
  1. ALPRAZOLAM [Concomitant]
     Dosage: UNK
  2. GEODON [Suspect]
     Indication: PSYCHOTIC DISORDER
     Dosage: UNK
  3. CITALOPRAM [Concomitant]
     Dosage: UNK

REACTIONS (1)
  - CARDIAC DISORDER [None]
